FAERS Safety Report 6530191-8 (Version None)
Quarter: 2010Q1

REPORT INFORMATION
  Report Type: 
  Country: None (occurrence: None)
  Receive Date: 20100107
  Receipt Date: 20091209
  Transmission Date: 20100710
  Serious: No
  Sender: FDA-Public Use
  Company Number: US-BAYER-200917717BCC

PATIENT
  Age: 52 Year
  Sex: Male
  Weight: 79 kg

DRUGS (3)
  1. ALEVE (CAPLET) [Suspect]
     Indication: PAIN
     Dosage: TOTAL DAILY DOSE: 220 MG  UNIT DOSE: 220 MG
     Route: 048
     Dates: start: 20091204, end: 20091204
  2. ALEVE (CAPLET) [Suspect]
     Dosage: UNIT DOSE: 220 MG
     Route: 048
     Dates: start: 20091205, end: 20091205
  3. ALEVE (CAPLET) [Suspect]
     Dosage: TOTAL DAILY DOSE: 220 MG  UNIT DOSE: 220 MG
     Route: 048
     Dates: start: 20091206, end: 20091207

REACTIONS (3)
  - RASH [None]
  - RASH ERYTHEMATOUS [None]
  - SWELLING FACE [None]
